FAERS Safety Report 26047922 (Version 1)
Quarter: 2025Q4

REPORT INFORMATION
  Report Type: Spontaneous
  Country: EU (occurrence: EU)
  Receive Date: 20251114
  Receipt Date: 20251114
  Transmission Date: 20260119
  Serious: Yes (Other)
  Sender: ABBVIE
  Company Number: None

PATIENT
  Age: 56 Year
  Sex: Female

DRUGS (6)
  1. ATOGEPANT [Suspect]
     Active Substance: ATOGEPANT
     Indication: Migraine prophylaxis
     Dosage: ONE TABLET PER DAY
     Route: 048
     Dates: start: 20250717, end: 20250918
  2. PROPRANOLOL HYDROCHLORIDE [Concomitant]
     Active Substance: PROPRANOLOL HYDROCHLORIDE
     Indication: Migraine prophylaxis
     Dosage: MORNING AND EVENING 10 MG
     Route: 048
     Dates: start: 20250628, end: 20251014
  3. CANDESARTAN [Concomitant]
     Active Substance: CANDESARTAN
     Indication: Migraine prophylaxis
     Dosage: MORNING AND EVENING 8 MG
     Route: 048
     Dates: start: 202504, end: 20251014
  4. Miranax [Concomitant]
     Indication: Migraine
     Dosage: TIME INTERVAL: AS NECESSARY: ONE TABLET DURING MIGRAINE ATTACKS
     Route: 048
     Dates: start: 2010
  5. AMITRIPTYLINE HYDROCHLORIDE [Concomitant]
     Active Substance: AMITRIPTYLINE HYDROCHLORIDE
     Indication: Migraine prophylaxis
     Dosage: ONE TABLET IN THE EVENING
     Route: 048
     Dates: start: 202505
  6. ROSUVASTATIN CALCIUM [Concomitant]
     Active Substance: ROSUVASTATIN CALCIUM
     Indication: Hypercholesterolaemia
     Dosage: ONE IN THE EVENING
     Route: 048
     Dates: start: 202401

REACTIONS (2)
  - Seizure [Recovered/Resolved]
  - Drug ineffective [Recovered/Resolved]

NARRATIVE: CASE EVENT DATE: 20250701
